FAERS Safety Report 5449836-9 (Version None)
Quarter: 2007Q3

REPORT INFORMATION
  Report Type: 
  Country: None (occurrence: None)
  Receive Date: 20070831
  Receipt Date: 20070820
  Transmission Date: 20080115
  Serious: Yes (Life-Threatening, Hospitalization)
  Sender: FDA-Public Use
  Company Number: THYM-11459

PATIENT
  Age: 10 Year
  Sex: Male
  Weight: 42 kg

DRUGS (12)
  1. THYMOGLOBULIN [Suspect]
     Indication: ALLOGENIC BONE MARROW TRANSPLANTATION THERAPY
     Dosage: 20 MG/KG QD IV
     Route: 042
     Dates: start: 20070503, end: 20070505
  2. BUSULFAN [Concomitant]
  3. ETOPOSIDE [Concomitant]
  4. CYCLOPHOSPHAMIDE [Concomitant]
  5. TAMIFLU [Concomitant]
  6. DIFLUCAN [Concomitant]
  7. APURIN [Concomitant]
  8. RIVOTRIL [Concomitant]
  9. KYTRIL [Concomitant]
  10. VOGALENE [Concomitant]
  11. CEFTAZIDIM [Concomitant]
  12. SULFOTRIM [Concomitant]

REACTIONS (5)
  - DEAFNESS [None]
  - DRUG TOXICITY [None]
  - HERPES ZOSTER [None]
  - MYELITIS TRANSVERSE [None]
  - PARALYSIS [None]
